FAERS Safety Report 5000360-7 (Version None)
Quarter: 2006Q2

REPORT INFORMATION
  Report Type: 
  Country: None (occurrence: None)
  Receive Date: 20060511
  Receipt Date: 20050112
  Transmission Date: 20061013
  Serious: Yes (Death, Hospitalization)
  Sender: FDA-Public Use
  Company Number: US-MERCK-0501USA02365

PATIENT
  Age: 63 Year
  Sex: Female
  Weight: 64 kg

DRUGS (1)
  1. VIOXX [Suspect]
     Indication: ARTHRITIS
     Route: 048
     Dates: start: 20000901, end: 20040203

REACTIONS (15)
  - ARTHRITIS [None]
  - ATRIAL FIBRILLATION [None]
  - BLOOD PRESSURE INCREASED [None]
  - CARDIAC FAILURE CONGESTIVE [None]
  - CELLULITIS [None]
  - CEREBROVASCULAR ACCIDENT [None]
  - CHEST PAIN [None]
  - DEATH [None]
  - DYSPNOEA EXERTIONAL [None]
  - FATIGUE [None]
  - HEADACHE [None]
  - OSTEOARTHRITIS [None]
  - PAIN IN EXTREMITY [None]
  - PALPITATIONS [None]
  - SINUS CONGESTION [None]
